FAERS Safety Report 11803120 (Version 2)
Quarter: 2016Q1

REPORT INFORMATION
  Report Type: Spontaneous
  Country: US (occurrence: US)
  Receive Date: 20151204
  Receipt Date: 20160128
  Transmission Date: 20160525
  Serious: Yes (Other)
  Sender: FDA-Public Use
  Company Number: US-GLAXOSMITHKLINE-US2015172649

PATIENT
  Age: 15 Year
  Sex: Female
  Weight: 38.55 kg

DRUGS (1)
  1. BREO ELLIPTA [Suspect]
     Active Substance: FLUTICASONE FUROATE\VILANTEROL TRIFENATATE
     Indication: PRODUCT USED FOR UNKNOWN INDICATION
     Dosage: 1 PUFF(S), QD
     Route: 065
     Dates: start: 20150720

REACTIONS (2)
  - White blood cell count abnormal [Unknown]
  - Leukopenia [Unknown]

NARRATIVE: CASE EVENT DATE: 20151112
